FAERS Safety Report 8530929-4 (Version None)
Quarter: 2012Q3

REPORT INFORMATION
  Report Type: 
  Country: None (occurrence: None)
  Receive Date: 20120723
  Receipt Date: 20120713
  Transmission Date: 20120928
  Serious: Yes (Hospitalization, Other)
  Sender: FDA-Public Use
  Company Number: BE-CELGENEUS-013-21880-12053349

PATIENT
  Sex: Female
  Weight: 62.6 kg

DRUGS (28)
  1. DEXAMETHASONE [Suspect]
     Route: 048
     Dates: start: 20120426
  2. PANTOPRAZOLE [Concomitant]
     Route: 065
     Dates: start: 20120418
  3. REVLIMID [Suspect]
     Dosage: 15 MILLIGRAM
     Route: 048
     Dates: start: 20110428, end: 20110616
  4. REVLIMID [Suspect]
     Dosage: 10 MILLIGRAM
     Route: 048
     Dates: start: 20110624, end: 20111228
  5. REVLIMID [Suspect]
     Dosage: 10 MILLIGRAM
     Route: 048
     Dates: start: 20120426
  6. DEXAMETHASONE [Suspect]
     Indication: MULTIPLE MYELOMA
     Route: 048
     Dates: start: 20110105
  7. DEXAMETHASONE [Suspect]
     Route: 065
     Dates: start: 20120703
  8. CRANBERRY EXTRACT [Concomitant]
     Route: 065
     Dates: start: 20110301
  9. REVLIMID [Suspect]
     Dosage: 15 MILLIGRAM
     Route: 048
     Dates: start: 20120105, end: 20120125
  10. ASPIRIN [Concomitant]
     Indication: THROMBOSIS
     Dosage: 80 GRAM
     Route: 041
     Dates: start: 20110105
  11. FLEXIUM [Concomitant]
     Route: 065
     Dates: start: 20120213
  12. SODIUM CHLORIDE [Concomitant]
     Route: 065
     Dates: start: 20120709
  13. R CALM CREME [Concomitant]
     Route: 065
     Dates: start: 20120213
  14. FLEXIUM [Concomitant]
     Route: 065
     Dates: start: 20101002, end: 20111102
  15. MEROPENEM [Concomitant]
     Route: 065
     Dates: start: 20120419, end: 20120430
  16. POLYETHYLENE GLYCOL [Concomitant]
     Route: 065
     Dates: start: 20120430
  17. REVLIMID [Suspect]
     Indication: MULTIPLE MYELOMA
     Dosage: 10 MILLIGRAM
     Route: 048
     Dates: start: 20110105
  18. REVLIMID [Suspect]
     Dosage: 25 MILLIGRAM
     Route: 048
     Dates: start: 20120202
  19. DEXAMETHASONE [Suspect]
     Route: 048
     Dates: start: 20110624, end: 20110720
  20. DEXAMETHASONE [Suspect]
     Route: 065
     Dates: start: 20120702
  21. DEXAMETHASONE [Suspect]
     Route: 065
     Dates: start: 20120704
  22. SYMBICORT [Concomitant]
     Indication: COUGH
     Dosage: 4 DOSAGE FORMS
     Route: 055
     Dates: start: 20120501, end: 20120501
  23. PLATELETS [Concomitant]
     Route: 065
     Dates: start: 20120327
  24. CETAVLEX [Concomitant]
     Route: 065
     Dates: start: 20120417
  25. REVLIMID [Suspect]
     Route: 048
     Dates: start: 20110203, end: 20110420
  26. REVLIMID [Suspect]
     Dosage: 10 MILLIGRAM
     Route: 048
     Dates: start: 20120531
  27. BISOPROLOL FUMARATE [Concomitant]
     Route: 065
     Dates: start: 20060101
  28. RED BLOOD CELLS [Concomitant]
     Route: 065
     Dates: start: 20111018

REACTIONS (2)
  - PYREXIA [None]
  - LUNG SQUAMOUS CELL CARCINOMA STAGE UNSPECIFIED [None]
